FAERS Safety Report 11910066 (Version 2)
Quarter: 2016Q2

REPORT INFORMATION
  Report Type: Spontaneous
  Country: AU (occurrence: AU)
  Receive Date: 20160112
  Receipt Date: 20160412
  Transmission Date: 20160815
  Serious: Yes (Hospitalization, Other)
  Sender: FDA-Public Use
  Company Number: AU-TOLMAR, INC.-2016AU000119

PATIENT
  Age: 68 Year
  Sex: Male

DRUGS (1)
  1. ELIGARD [Suspect]
     Active Substance: LEUPROLIDE ACETATE
     Indication: PROSTATE CANCER
     Dosage: 22.5 MG, Q3MONTHS
     Route: 065
     Dates: start: 20150714

REACTIONS (8)
  - Renal disorder [Recovering/Resolving]
  - Cystitis [Recovering/Resolving]
  - Micturition urgency [Recovering/Resolving]
  - Incontinence [Recovering/Resolving]
  - Malaise [Recovering/Resolving]
  - Ureteral stent insertion [Recovering/Resolving]
  - Dehydration [Recovering/Resolving]
  - Pollakiuria [Recovering/Resolving]

NARRATIVE: CASE EVENT DATE: 201512
